FAERS Safety Report 8301218-8 (Version None)
Quarter: 2012Q2

REPORT INFORMATION
  Report Type: 
  Country: None (occurrence: None)
  Receive Date: 20120420
  Receipt Date: 20120420
  Transmission Date: 20120825
  Serious: Yes (Other)
  Sender: FDA-Public Use
  Company Number: None

PATIENT
  Age: 27 Year
  Sex: Female
  Weight: 83.914 kg

DRUGS (1)
  1. OXYCODONE/ACETAMINOPHEN [Suspect]
     Indication: PAIN
     Dosage: 10-325
     Route: 048
     Dates: start: 20120418, end: 20120521

REACTIONS (6)
  - CHEST PAIN [None]
  - DEHYDRATION [None]
  - ECONOMIC PROBLEM [None]
  - ABDOMINAL PAIN [None]
  - URTICARIA [None]
  - LIP SWELLING [None]
